FAERS Safety Report 12424602 (Version 1)
Quarter: 2016Q2

REPORT INFORMATION
  Report Type: Spontaneous
  Country: SG (occurrence: SG)
  Receive Date: 20160601
  Receipt Date: 20160601
  Transmission Date: 20160815
  Serious: Yes (Other)
  Sender: FDA-Public Use
  Company Number: SG-PFIZER INC-2016281098

PATIENT
  Age: 51 Year
  Sex: Female

DRUGS (1)
  1. ANZATAX [Suspect]
     Active Substance: PACLITAXEL
     Dosage: 111 MG, WEEKLY
     Route: 042
     Dates: start: 20160413, end: 20160413

REACTIONS (2)
  - Loss of consciousness [Recovered/Resolved]
  - Dyspnoea [Recovered/Resolved]

NARRATIVE: CASE EVENT DATE: 20160413
